FAERS Safety Report 7542751-6 (Version None)
Quarter: 2011Q2

REPORT INFORMATION
  Report Type: 
  Country: None (occurrence: None)
  Receive Date: 20110613
  Receipt Date: 20110608
  Transmission Date: 20111010
  Serious: Yes (Other)
  Sender: FDA-Public Use
  Company Number: A0930683A

PATIENT
  Sex: Male
  Weight: 102.3 kg

DRUGS (1)
  1. ADVAIR DISKUS 100/50 [Suspect]
     Indication: CHRONIC OBSTRUCTIVE PULMONARY DISEASE
     Dosage: 2PUFF TWICE PER DAY
     Route: 055
     Dates: start: 20090101

REACTIONS (8)
  - CHEST PAIN [None]
  - NIGHT SWEATS [None]
  - FATIGUE [None]
  - DYSPNOEA [None]
  - SPUTUM ABNORMAL [None]
  - INFECTION [None]
  - COUGH [None]
  - LOSS OF CONSCIOUSNESS [None]
